FAERS Safety Report 20386963 (Version 1)
Quarter: 2022Q1

REPORT INFORMATION
  Report Type: Spontaneous
  Country: FR (occurrence: FR)
  Receive Date: 20220127
  Receipt Date: 20220127
  Transmission Date: 20220424
  Serious: Yes (Other)
  Sender: FDA-Public Use
  Company Number: FR-FERRINGPH-2021FE06377

PATIENT
  Sex: Female
  Weight: 46 kg

DRUGS (2)
  1. MESALAMINE [Suspect]
     Active Substance: MESALAMINE
     Indication: Product used for unknown indication
     Dosage: UNK
     Route: 065
  2. ROWASA [Concomitant]
     Active Substance: MESALAMINE
     Indication: Colitis ulcerative

REACTIONS (6)
  - Malaise [Recovered/Resolved]
  - Rectal ulcer [Recovered/Resolved]
  - Gastrointestinal pain [Recovered/Resolved]
  - Abdominal discomfort [Recovered/Resolved]
  - Poor quality sleep [Recovered/Resolved]
  - Paraesthesia [Recovered/Resolved]
